FAERS Safety Report 4328502-7 (Version None)
Quarter: 2004Q1

REPORT INFORMATION
  Report Type: 
  Country: None (occurrence: None)
  Receive Date: 20040331
  Receipt Date: 20040325
  Transmission Date: 20041129
  Serious: Yes (Disabling)
  Sender: FDA-Public Use
  Company Number: US-MERCK-0403USA02374

PATIENT
  Age: 75 Year
  Sex: Female

DRUGS (7)
  1. FOSAMAX [Suspect]
     Indication: OSTEOPOROSIS
     Route: 048
     Dates: start: 20030929
  2. ASCORBIC ACID [Concomitant]
     Route: 065
  3. CALCIUM (UNSPECIFIED) [Concomitant]
     Route: 065
  4. PREMARIN [Concomitant]
     Route: 065
  5. UNICAP SR [Concomitant]
     Route: 065
  6. VITAMIN B (UNSPECIFIED) [Concomitant]
     Route: 065
  7. VITAMIN E [Concomitant]
     Route: 065

REACTIONS (4)
  - EATING DISORDER [None]
  - HERPES SIMPLEX [None]
  - ORAL PAIN [None]
  - PRURITUS [None]
